FAERS Safety Report 22609307 (Version 2)
Quarter: 2025Q3

REPORT INFORMATION
  Report Type: Report from Study
  Country: IN (occurrence: IN)
  Receive Date: 20230616
  Receipt Date: 20250915
  Transmission Date: 20251020
  Serious: Yes (Other)
  Sender: NOVARTIS
  Company Number: IN-002147023-NVSC2022IN242791

PATIENT
  Age: 78 Year
  Sex: Female

DRUGS (3)
  1. RIBOCICLIB [Suspect]
     Active Substance: RIBOCICLIB
     Indication: Breast cancer metastatic
     Dosage: 600 MG, QD
     Route: 048
     Dates: start: 20220629
  2. RIBOCICLIB [Suspect]
     Active Substance: RIBOCICLIB
     Dosage: 400 MG, QD
     Route: 048
  3. RIBOCICLIB [Suspect]
     Active Substance: RIBOCICLIB
     Dosage: 200 MG, QD
     Route: 048

REACTIONS (29)
  - Retinopathy [Unknown]
  - Diabetes mellitus [Unknown]
  - Decreased appetite [Unknown]
  - Hyperchlorhydria [Unknown]
  - Cough [Unknown]
  - Back pain [Unknown]
  - Vitamin D abnormal [Unknown]
  - Laboratory test abnormal [Unknown]
  - Sensory disturbance [Recovered/Resolved]
  - Skin hypertrophy [Unknown]
  - Toothache [Unknown]
  - Gastrooesophageal reflux disease [Recovered/Resolved]
  - Vomiting [Unknown]
  - Cough [Recovered/Resolved]
  - Decreased appetite [Recovered/Resolved]
  - Alopecia [Unknown]
  - Fatigue [Unknown]
  - Dyspnoea exertional [Recovering/Resolving]
  - White blood cell count decreased [Recovering/Resolving]
  - Haemoglobin decreased [Unknown]
  - Platelet count decreased [Unknown]
  - Nausea [Recovered/Resolved]
  - Blood creatinine increased [Unknown]
  - Dry skin [Recovering/Resolving]
  - Weight decreased [Recovering/Resolving]
  - Rhinorrhoea [Recovering/Resolving]
  - Pleural effusion [Unknown]
  - Ill-defined disorder [Unknown]
  - Mass [Unknown]

NARRATIVE: CASE EVENT DATE: 20220701
